FAERS Safety Report 16165143 (Version 1)
Quarter: 2019Q2

REPORT INFORMATION
  Report Type: Spontaneous
  Country: US (occurrence: US)
  Receive Date: 20190405
  Receipt Date: 20190405
  Transmission Date: 20190711
  Serious: Yes (Other)
  Sender: FDA-Public Use
  Company Number: US-ELI_LILLY_AND_COMPANY-US201904001458

PATIENT
  Sex: Male

DRUGS (1)
  1. BASAGLAR [Suspect]
     Active Substance: INSULIN GLARGINE
     Indication: PRODUCT USED FOR UNKNOWN INDICATION
     Dosage: 15 DOSAGE FORM, DAILY
     Route: 065
     Dates: start: 20190328

REACTIONS (6)
  - Confusional state [Unknown]
  - Dysarthria [Unknown]
  - Vomiting [Unknown]
  - Blood glucose increased [Unknown]
  - Gait disturbance [Unknown]
  - Asthenia [Unknown]
